FAERS Safety Report 20306976 (Version 1)
Quarter: 2022Q1

REPORT INFORMATION
  Report Type: Spontaneous
  Country: US (occurrence: US)
  Receive Date: 20220107
  Receipt Date: 20220107
  Transmission Date: 20220423
  Serious: Yes (Hospitalization)
  Sender: FDA-Public Use
  Company Number: US-BIOVITRUM-2022US00053

PATIENT
  Sex: Male

DRUGS (3)
  1. SYNAGIS [Suspect]
     Active Substance: PALIVIZUMAB
     Indication: Congenital aortic anomaly
     Route: 030
     Dates: start: 20210411
  2. SYNAGIS [Suspect]
     Active Substance: PALIVIZUMAB
     Indication: Pulmonary hypertension
  3. SYNAGIS [Suspect]
     Active Substance: PALIVIZUMAB
     Indication: Respiratory syncytial virus infection

REACTIONS (1)
  - Cough [Unknown]
